FAERS Safety Report 5288577-8 (Version None)
Quarter: 2007Q2

REPORT INFORMATION
  Report Type: 
  Country: None (occurrence: None)
  Receive Date: 20070405
  Receipt Date: 20070404
  Transmission Date: 20071010
  Serious: Yes (Hospitalization, Other)
  Sender: FDA-Public Use
  Company Number: GB-BRISTOL-MYERS SQUIBB COMPANY-13700976

PATIENT
  Age: 47 Year
  Sex: Female

DRUGS (3)
  1. CYCLOPHOSPHAMIDE [Suspect]
     Indication: BREAST CANCER
  2. PACLITAXEL [Suspect]
     Indication: BREAST CANCER
  3. EPIRUBICIN [Suspect]
     Indication: BREAST CANCER

REACTIONS (1)
  - ATRIOVENTRICULAR BLOCK SECOND DEGREE [None]
